FAERS Safety Report 19816780 (Version 1)
Quarter: 2021Q3

REPORT INFORMATION
  Report Type: Report from Study
  Country: None (occurrence: CO)
  Receive Date: 20210909
  Receipt Date: 20210909
  Transmission Date: 20211014
  Serious: Yes (Other)
  Sender: FDA-Public Use
  Company Number: CO-ABBVIE-21K-036-4071112-00

PATIENT
  Age: 70 Year
  Sex: Female
  Weight: 69 kg

DRUGS (2)
  1. HUMIRA [Suspect]
     Active Substance: ADALIMUMAB
     Indication: RHEUMATOID ARTHRITIS
     Route: 058
  2. HUMIRA [Suspect]
     Active Substance: ADALIMUMAB
     Indication: PRODUCT USED FOR UNKNOWN INDICATION
     Route: 058
     Dates: start: 20140514

REACTIONS (6)
  - Pain in extremity [Recovering/Resolving]
  - Visual impairment [Recovering/Resolving]
  - Eyelid disorder [Recovering/Resolving]
  - Arthralgia [Recovering/Resolving]
  - Swelling of eyelid [Recovering/Resolving]
  - Eyelid ptosis [Unknown]

NARRATIVE: CASE EVENT DATE: 2021
